FAERS Safety Report 8184123-X (Version None)
Quarter: 2012Q1

REPORT INFORMATION
  Report Type: 
  Country: None (occurrence: None)
  Receive Date: 20120305
  Receipt Date: 20120210
  Transmission Date: 20120608
  Serious: Yes (Other)
  Sender: FDA-Public Use
  Company Number: MX-ROCHE-1040308

PATIENT
  Sex: Male
  Weight: 61 kg

DRUGS (5)
  1. VINCRISTINE [Concomitant]
     Indication: NON-HODGKIN'S LYMPHOMA
     Route: 042
     Dates: start: 20110924
  2. CYCLOPHOSPHAMIDE [Concomitant]
     Indication: NON-HODGKIN'S LYMPHOMA
     Route: 042
     Dates: start: 20110924
  3. CIPROFLOXACIN [Concomitant]
     Route: 048
     Dates: start: 20110924
  4. MABTHERA [Suspect]
     Indication: NON-HODGKIN'S LYMPHOMA
     Route: 042
     Dates: start: 20110924
  5. EPIRUBICIN [Concomitant]
     Indication: NON-HODGKIN'S LYMPHOMA
     Route: 042
     Dates: start: 20110924

REACTIONS (6)
  - ABDOMINAL PAIN [None]
  - OROPHARYNGEAL PAIN [None]
  - FAECES DISCOLOURED [None]
  - HAEMORRHOIDS [None]
  - MYALGIA [None]
  - DIARRHOEA [None]
